FAERS Safety Report 7213302-0 (Version None)
Quarter: 2011Q1

REPORT INFORMATION
  Report Type: 
  Country: None (occurrence: None)
  Receive Date: 20110106
  Receipt Date: 20101228
  Transmission Date: 20110831
  Serious: Yes (Hospitalization)
  Sender: FDA-Public Use
  Company Number: GR-US-EMD SERONO, INC.-7033947

PATIENT
  Age: 52 Year
  Sex: Male

DRUGS (2)
  1. ALPHA NEUROBION [Concomitant]
  2. REBIF [Suspect]
     Indication: MULTIPLE SCLEROSIS
     Route: 058
     Dates: start: 20100913, end: 20101215

REACTIONS (1)
  - RESPIRATORY TRACT INFECTION [None]
